FAERS Safety Report 8598510-9 (Version None)
Quarter: 2012Q3

REPORT INFORMATION
  Report Type: 
  Country: None (occurrence: None)
  Receive Date: 20120816
  Receipt Date: 20120808
  Transmission Date: 20120928
  Serious: Yes (Death)
  Sender: FDA-Public Use
  Company Number: FR-ROCHE-1095806

PATIENT
  Sex: Male

DRUGS (4)
  1. LEUCOVORIN CALCIUM [Concomitant]
     Dates: start: 20110512, end: 20110819
  2. AVASTIN [Suspect]
     Indication: COLON CANCER
     Dates: start: 20110512, end: 20110819
  3. FLUOROURACIL [Concomitant]
     Dates: start: 20110512, end: 20110819
  4. IRINOTECAN HYDROCHLORIDE [Concomitant]
     Dates: start: 20110512, end: 20110819

REACTIONS (5)
  - DISEASE PROGRESSION [None]
  - DIARRHOEA [None]
  - RECTAL HAEMORRHAGE [None]
  - ASTHENIA [None]
  - EPISTAXIS [None]
